FAERS Safety Report 6311515-3 (Version None)
Quarter: 2009Q3

REPORT INFORMATION
  Report Type: 
  Country: None (occurrence: None)
  Receive Date: 20090813
  Receipt Date: 20090813
  Transmission Date: 20100115
  Serious: Yes (Other)
  Sender: FDA-Public Use
  Company Number: None

PATIENT
  Age: 60 Year
  Sex: Female
  Weight: 72.5755 kg

DRUGS (2)
  1. LEVAQUIN [Suspect]
     Indication: PNEUMONIA
     Dosage: 1 DAILY
     Dates: start: 20090806
  2. LEVAQUIN [Suspect]
     Indication: PNEUMONIA
     Dosage: 1 DAILY
     Dates: start: 20090812

REACTIONS (7)
  - ARTHRALGIA [None]
  - ASTHENIA [None]
  - FATIGUE [None]
  - HYPERAESTHESIA [None]
  - MYALGIA [None]
  - PAIN [None]
  - PAIN IN EXTREMITY [None]
